FAERS Safety Report 6887013-5 (Version None)
Quarter: 2010Q3

REPORT INFORMATION
  Report Type: 
  Country: None (occurrence: None)
  Receive Date: 20100730
  Receipt Date: 20100719
  Transmission Date: 20110219
  Serious: Yes (Hospitalization)
  Sender: FDA-Public Use
  Company Number: FR-BRISTOL-MYERS SQUIBB COMPANY-15214661

PATIENT
  Age: 38 Year
  Sex: Male

DRUGS (8)
  1. GLUCOPHAGE [Suspect]
     Route: 048
     Dates: start: 20091116, end: 20091126
  2. AMOXICILLIN [Suspect]
     Route: 048
     Dates: start: 20091124, end: 20091204
  3. WELLVONE [Suspect]
     Dates: start: 20091127, end: 20091202
  4. BACTRIM [Suspect]
     Dosage: ON 27NOV2009 BACTRIM WAS REPLACED BY WELLVONE
     Dates: start: 20091117, end: 20091126
  5. OFLOCET [Suspect]
     Route: 001
     Dates: start: 20091124, end: 20091201
  6. ABACAVIR SULFATE [Suspect]
     Route: 048
     Dates: start: 20091123, end: 20091126
  7. ZIDOVUDINE [Concomitant]
     Dates: start: 20091123
  8. LAMIVUDINE [Concomitant]
     Route: 048
     Dates: start: 20091123

REACTIONS (2)
  - EAR INFECTION [None]
  - TRANSAMINASES INCREASED [None]
